FAERS Safety Report 6133020-X (Version None)
Quarter: 2009Q1

REPORT INFORMATION
  Report Type: 
  Country: None (occurrence: None)
  Receive Date: 20090325
  Receipt Date: 20090325
  Transmission Date: 20090719
  Serious: No
  Sender: FDA-Public Use
  Company Number: None

PATIENT
  Age: 93 Year
  Sex: Female

DRUGS (1)
  1. DILTIAZEM HYDROCHLORIDE [Suspect]
     Dosage: 1 TABLET EVERY 6 HOURS PO
     Route: 048
     Dates: start: 20081015, end: 20081210

REACTIONS (1)
  - SINUS BRADYCARDIA [None]
